FAERS Safety Report 6567331-0 (Version None)
Quarter: 2010Q1

REPORT INFORMATION
  Report Type: 
  Country: None (occurrence: None)
  Receive Date: 20100202
  Receipt Date: 20100121
  Transmission Date: 20100710
  Serious: Yes (Hospitalization)
  Sender: FDA-Public Use
  Company Number: PHHY2009GB44559

PATIENT
  Sex: Male

DRUGS (7)
  1. CLOZARIL [Suspect]
     Indication: SCHIZOPHRENIA
     Dosage: UNK
     Dates: start: 19970612, end: 20091010
  2. CLOZARIL [Suspect]
     Dosage: 275 MG, UNK
  3. ASPIRIN [Concomitant]
     Dosage: 75 MG, UNK
     Route: 048
     Dates: start: 20080901
  4. EPILIM CHRONO [Concomitant]
     Dosage: 300 MG, UNK
     Route: 048
     Dates: start: 20090701
  5. SIMVASTATIN [Concomitant]
     Dosage: 40 MG, UNK
     Route: 048
     Dates: start: 20080901
  6. SENNA [Concomitant]
     Dosage: 15 MG, UNK
     Dates: start: 20090601
  7. LACTULOSE [Concomitant]
     Dosage: 15 ML, BID
     Route: 048
     Dates: start: 20090601

REACTIONS (1)
  - LOWER RESPIRATORY TRACT INFECTION [None]
